FAERS Safety Report 7971873-0 (Version None)
Quarter: 2011Q4

REPORT INFORMATION
  Report Type: 
  Country: None (occurrence: None)
  Receive Date: 20111212
  Receipt Date: 20111128
  Transmission Date: 20120403
  Serious: Yes (Death, Hospitalization)
  Sender: FDA-Public Use
  Company Number: GB-GILEAD-2011-0047898

PATIENT
  Age: 56 Year
  Sex: Female

DRUGS (10)
  1. DENOPAMINE [Concomitant]
     Dosage: 40MG PER DAY
     Route: 048
  2. TADALAFIL [Concomitant]
     Route: 048
  3. FLOLAN [Suspect]
     Route: 042
     Dates: start: 20080101
  4. FUROSEMIDE [Concomitant]
     Dosage: 40MG PER DAY
     Route: 048
  5. SPIRONOLACTONE [Concomitant]
     Dosage: 25MG PER DAY
     Route: 048
  6. PIMOBENDAN [Concomitant]
     Dosage: 5MG PER DAY
     Route: 048
  7. AMBRISENTAN [Suspect]
     Route: 048
  8. METILDIGOXIN [Concomitant]
     Dosage: 1IUAX PER DAY
     Route: 048
  9. UNKNOWN DRUG [Concomitant]
     Route: 065
  10. ASPIRIN [Concomitant]
     Dosage: 1IUAX PER DAY
     Route: 048

REACTIONS (16)
  - CORONARY ARTERY DISEASE [None]
  - PULMONARY ARTERY DILATATION [None]
  - CORONARY ARTERY STENOSIS [None]
  - PNEUMONIA [None]
  - GENERAL PHYSICAL HEALTH DETERIORATION [None]
  - DILATATION VENTRICULAR [None]
  - BUNDLE BRANCH BLOCK RIGHT [None]
  - ELECTROCARDIOGRAM ST SEGMENT DEPRESSION [None]
  - CARDIAC FAILURE [None]
  - PULMONARY ALVEOLAR HAEMORRHAGE [None]
  - PULMONARY HYPERTENSION [None]
  - CARDIAC MURMUR [None]
  - SINUS RHYTHM [None]
  - DEATH [None]
  - BREATH SOUNDS ABNORMAL [None]
  - OEDEMA PERIPHERAL [None]
